FAERS Safety Report 7473113-8 (Version None)
Quarter: 2011Q2

REPORT INFORMATION
  Report Type: 
  Country: None (occurrence: None)
  Receive Date: 20110511
  Receipt Date: 20110503
  Transmission Date: 20111010
  Serious: Yes (Death)
  Sender: FDA-Public Use
  Company Number: CA-ROCHE-775361

PATIENT
  Sex: Female

DRUGS (7)
  1. PLAQUENIL [Concomitant]
  2. ZOPICLONE [Concomitant]
  3. PANTOLOC [Concomitant]
  4. CAPECITABINE [Suspect]
     Indication: BREAST CANCER
     Route: 048
     Dates: start: 20110121, end: 20110303
  5. DECADRON [Concomitant]
  6. SUPEUDOL [Concomitant]
  7. APO-DICLO [Concomitant]

REACTIONS (1)
  - NEOPLASM MALIGNANT [None]
